FAERS Safety Report 20260818 (Version 1)
Quarter: 2021Q4

REPORT INFORMATION
  Report Type: Spontaneous
  Country: US (occurrence: US)
  Receive Date: 20211230
  Receipt Date: 20211230
  Transmission Date: 20220303
  Serious: No
  Sender: FDA-Public Use
  Company Number: US-COOPERSURGICAL, INC.-US-2021CPS000721

PATIENT
  Age: 19 Year
  Sex: Female
  Weight: 97.506 kg

DRUGS (4)
  1. PARAGARD T 380A [Suspect]
     Active Substance: COPPER
     Indication: Contraception
     Dosage: UNK
     Route: 015
     Dates: start: 20201223, end: 20210126
  2. PRILOSEC                           /00661201/ [Concomitant]
     Indication: Product used for unknown indication
     Dosage: UNK
     Route: 065
  3. SINGULAIR [Concomitant]
     Active Substance: MONTELUKAST SODIUM
     Indication: Product used for unknown indication
     Dosage: UNK
     Route: 065
  4. ZYRTEC                             /00884302/ [Concomitant]
     Indication: Product used for unknown indication
     Dosage: UNK
     Route: 065

REACTIONS (3)
  - Suprapubic pain [Recovered/Resolved]
  - Abdominal pain [Recovered/Resolved]
  - Abnormal uterine bleeding [Recovered/Resolved]

NARRATIVE: CASE EVENT DATE: 20201223
